FAERS Safety Report 11935246 (Version 1)
Quarter: 2016Q1

REPORT INFORMATION
  Report Type: Other
  Country: FI (occurrence: FI)
  Receive Date: 20160121
  Receipt Date: 20160121
  Transmission Date: 20160526
  Serious: Yes (Hospitalization, Other)
  Sender: FDA-Public Use
  Company Number: FI-TAKEDA-2016TEU000415

PATIENT
  Age: 69 Year
  Sex: Female

DRUGS (2)
  1. ACTOS [Suspect]
     Active Substance: PIOGLITAZONE HYDROCHLORIDE
     Indication: TYPE 2 DIABETES MELLITUS
     Dosage: 30 MG, QD
     Route: 048
     Dates: start: 2008, end: 20151218
  2. PREDNISOLON [Suspect]
     Active Substance: PREDNISOLONE
     Indication: ALLERGIC GRANULOMATOUS ANGIITIS
     Dosage: UNK, QD
     Route: 048
     Dates: start: 201402

REACTIONS (2)
  - Bone disorder [Unknown]
  - Radius fracture [Not Recovered/Not Resolved]

NARRATIVE: CASE EVENT DATE: 20151115
